FAERS Safety Report 19693609 (Version 2)
Quarter: 2021Q3

REPORT INFORMATION
  Report Type: Spontaneous
  Country: US (occurrence: US)
  Receive Date: 20210813
  Receipt Date: 20210820
  Transmission Date: 20211014
  Serious: No
  Sender: FDA-Public Use
  Company Number: US-ALEMBIC PHARMACUETICALS LIMITED-2021SCAL000333

PATIENT

DRUGS (1)
  1. BIMATOPROST. [Suspect]
     Active Substance: BIMATOPROST
     Indication: GROWTH OF EYELASHES
     Dosage: 1 DROP, QD/ 1 DROP WITH AN APPLICATOR ON EACH EYELASHESONCE AT NIGHT ON EACH EYELASHES
     Route: 061
     Dates: start: 20210724, end: 20210728

REACTIONS (8)
  - Product complaint [Unknown]
  - Ocular hyperaemia [Recovered/Resolved]
  - Swelling of eyelid [Recovered/Resolved]
  - Erythema of eyelid [Recovered/Resolved]
  - Eye swelling [Recovered/Resolved]
  - Madarosis [Recovered/Resolved]
  - Periorbital swelling [Recovered/Resolved]
  - Eyelash changes [Not Recovered/Not Resolved]

NARRATIVE: CASE EVENT DATE: 20210725
